FAERS Safety Report 11624797 (Version 3)
Quarter: 2015Q4

REPORT INFORMATION
  Report Type: Spontaneous
  Country: JP (occurrence: JP)
  Receive Date: 20151013
  Receipt Date: 20151109
  Transmission Date: 20160304
  Serious: Yes (Hospitalization, Other)
  Sender: FDA-Public Use
  Company Number: JP-GLAXOSMITHKLINE-JP2015JPN142793

PATIENT
  Age: 83 Year
  Sex: Female

DRUGS (7)
  1. EBRANTIL [Concomitant]
     Active Substance: URAPIDIL
     Dosage: 30 MG, QD
  2. ZOLPIDEM TARTRATE OD [Concomitant]
     Active Substance: ZOLPIDEM TARTRATE
     Dosage: 5 MG, QD
  3. FAMOTIDINE D [Concomitant]
     Active Substance: FAMOTIDINE
     Dosage: 10 MG, QD
  4. YOKUKANSAN [Concomitant]
     Active Substance: HERBALS
     Dosage: 2.5 G, BID
  5. UBRETID [Concomitant]
     Active Substance: DISTIGMINE BROMIDE
     Dosage: 5 MG, QD
  6. LAMICTAL [Suspect]
     Active Substance: LAMOTRIGINE
     Dosage: 25 MG, QD
     Route: 048
     Dates: start: 20150930
  7. LAMICTAL [Suspect]
     Active Substance: LAMOTRIGINE
     Indication: EPILEPSY
     Dosage: 100 MG, QD
     Route: 048
     Dates: start: 20141023, end: 201509

REACTIONS (2)
  - Dehydration [Recovering/Resolving]
  - Enterocolitis [Recovering/Resolving]

NARRATIVE: CASE EVENT DATE: 20150912
